FAERS Safety Report 21160469 (Version 6)
Quarter: 2022Q4

REPORT INFORMATION
  Report Type: Report from Study
  Country: US (occurrence: US)
  Receive Date: 20220802
  Receipt Date: 20221205
  Transmission Date: 20230113
  Serious: Yes (Other)
  Sender: FDA-Public Use
  Company Number: US-TAKEDA-2021TUS050472

PATIENT
  Sex: Male

DRUGS (1)
  1. VEDOLIZUMAB [Suspect]
     Active Substance: VEDOLIZUMAB
     Indication: Colitis ulcerative
     Dosage: 300 MILLIGRAM, Q4WEEKS
     Route: 042

REACTIONS (9)
  - Diabetes mellitus [Unknown]
  - Hepatic cirrhosis [Unknown]
  - Cardiac disorder [Unknown]
  - Blood cholesterol abnormal [Unknown]
  - Blood pressure increased [Unknown]
  - Osteoporosis [Unknown]
  - Illness [Unknown]
  - Malaise [Unknown]
  - Off label use [Unknown]
